FAERS Safety Report 10283272 (Version 1)
Quarter: 2014Q3

REPORT INFORMATION
  Report Type: Spontaneous
  Country: US (occurrence: None)
  Receive Date: 20140702
  Receipt Date: 20140702
  Transmission Date: 20150326
  Serious: Yes (Hospitalization, Other)
  Sender: FDA-Public Use
  Company Number: SYM-2014-22548

PATIENT
  Age: 59 Year
  Sex: Female

DRUGS (1)
  1. XENAZINE [Suspect]
     Active Substance: TETRABENAZINE
     Indication: CEREBRAL PALSY
     Dosage: 25 MG, 2 IN 1 D
     Dates: start: 20140410, end: 20140605

REACTIONS (2)
  - Motor dysfunction [None]
  - Pneumonia [None]

NARRATIVE: CASE EVENT DATE: 2014
